FAERS Safety Report 6120759-5 (Version None)
Quarter: 2009Q1

REPORT INFORMATION
  Report Type: 
  Country: None (occurrence: None)
  Receive Date: 20090317
  Receipt Date: 20090310
  Transmission Date: 20090719
  Serious: Yes (Hospitalization)
  Sender: FDA-Public Use
  Company Number: JP-BAYER-200910352BYL

PATIENT
  Age: 37 Year
  Sex: Female

DRUGS (1)
  1. SH T 00186 [Suspect]
     Indication: DYSMENORRHOEA
     Dosage: TOTAL DAILY DOSE: 1 DF
     Route: 048
     Dates: start: 20080309, end: 20090202

REACTIONS (1)
  - FACIAL PALSY [None]
